FAERS Safety Report 4459036-7 (Version None)
Quarter: 2004Q3

REPORT INFORMATION
  Report Type: 
  Country: None (occurrence: None)
  Receive Date: 20040927
  Receipt Date: 20040913
  Transmission Date: 20050211
  Serious: Yes (Death, Hospitalization)
  Sender: FDA-Public Use
  Company Number: JP-JNJFOC-20040810136

PATIENT
  Sex: Female
  Weight: 50 kg

DRUGS (5)
  1. TA-650 [Suspect]
     Route: 041
  2. TA-650 [Suspect]
     Indication: RHEUMATOID ARTHRITIS
     Route: 041
  3. PLACEBO [Suspect]
     Route: 041
  4. PLACEBO [Suspect]
     Route: 041
  5. PLACEBO [Suspect]
     Indication: RHEUMATOID ARTHRITIS
     Route: 041

REACTIONS (10)
  - ANURIA [None]
  - BALANCE DISORDER [None]
  - BLADDER CANCER [None]
  - CELLULITIS [None]
  - FALL [None]
  - HAEMORRHAGIC STROKE [None]
  - NEUROGENIC BLADDER [None]
  - PARALYSIS [None]
  - PUTAMEN HAEMORRHAGE [None]
  - URINARY TRACT INFECTION [None]
